FAERS Safety Report 11839228 (Version 1)
Quarter: 2015Q4

REPORT INFORMATION
  Report Type: Spontaneous
  Country: ES (occurrence: ES)
  Receive Date: 20151216
  Receipt Date: 20151216
  Transmission Date: 20160305
  Serious: Yes (Other)
  Sender: FDA-Public Use
  Company Number: ES-JNJFOC-20151212734

PATIENT
  Sex: Female

DRUGS (4)
  1. KETOCONAZOLE. [Suspect]
     Active Substance: KETOCONAZOLE
     Indication: VULVOVAGINAL CANDIDIASIS
     Dosage: 200 AND 400 MG/DAY IN REGULAR TREATMENTS LASTING A MAXIMUM OF SIX DAYS
     Route: 065
  2. ITRACONAZOLE. [Suspect]
     Active Substance: ITRACONAZOLE
     Indication: MUCOCUTANEOUS CANDIDIASIS
     Dosage: 100 AND 400 MG/DAY WITH A DURATION RANGING BETWEEN ONE DAY AND FOUR WEEKS
     Route: 065
  3. KETOCONAZOLE. [Suspect]
     Active Substance: KETOCONAZOLE
     Indication: MUCOCUTANEOUS CANDIDIASIS
     Dosage: 200 AND 400 MG/DAY IN REGULAR TREATMENTS LASTING A MAXIMUM OF SIX DAYS
     Route: 065
  4. ITRACONAZOLE. [Suspect]
     Active Substance: ITRACONAZOLE
     Indication: VULVOVAGINAL CANDIDIASIS
     Dosage: 100 AND 400 MG/DAY WITH A DURATION RANGING BETWEEN ONE DAY AND FOUR WEEKS
     Route: 065

REACTIONS (2)
  - Abortion spontaneous [Unknown]
  - Exposure during pregnancy [Recovered/Resolved]
